FAERS Safety Report 18301664 (Version 1)
Quarter: 2020Q3

REPORT INFORMATION
  Report Type: Spontaneous
  Country: CA (occurrence: CA)
  Receive Date: 20200923
  Receipt Date: 20200923
  Transmission Date: 20201103
  Serious: Yes (Hospitalization)
  Sender: FDA-Public Use
  Company Number: CA-ACCORD-202131

PATIENT
  Age: 61 Year
  Sex: Female

DRUGS (3)
  1. IMMUNOGLOBULINS [Concomitant]
     Indication: IMMUNE-MEDIATED MYOSITIS
     Route: 065
  2. MYCOPHENOLIC ACID. [Suspect]
     Active Substance: MYCOPHENOLIC ACID
     Indication: IMMUNE-MEDIATED MYOSITIS
     Dosage: 2 EVERY 1 DAYS
     Route: 065
  3. ACICLOVIR [Suspect]
     Active Substance: ACYCLOVIR
     Indication: EVIDENCE BASED TREATMENT
     Route: 065

REACTIONS (3)
  - Generalised tonic-clonic seizure [Recovered/Resolved]
  - Encephalopathy [Recovered/Resolved]
  - Status epilepticus [Recovered/Resolved]
